FAERS Safety Report 25982583 (Version 1)
Quarter: 2025Q4

REPORT INFORMATION
  Report Type: Report from Study
  Country: ZA (occurrence: ZA)
  Receive Date: 20251031
  Receipt Date: 20251031
  Transmission Date: 20260118
  Serious: Yes (Other)
  Sender: ALEXION PHARMACEUTICALS
  Company Number: ZA-AstraZeneca-CH-00966709A

PATIENT
  Age: 77 Year
  Sex: Male

DRUGS (3)
  1. BUDESONIDE\FORMOTEROL [Suspect]
     Active Substance: BUDESONIDE\FORMOTEROL
     Indication: Asthma
     Dosage: 120 MICROGRAM PER INHALATION
  2. Prerica [Concomitant]
     Indication: Epilepsy
     Route: 065
  3. Shilova [Concomitant]
     Indication: Blister
     Route: 065

REACTIONS (1)
  - Blindness [Unknown]
